FAERS Safety Report 5524499-2 (Version None)
Quarter: 2007Q4

REPORT INFORMATION
  Report Type: 
  Country: None (occurrence: None)
  Receive Date: 20071122
  Receipt Date: 20071115
  Transmission Date: 20080405
  Serious: Yes (Hospitalization, Disabling, Other)
  Sender: FDA-Public Use
  Company Number: PHBS2007JP16574

PATIENT
  Age: 10 Year
  Sex: Male
  Weight: 60 kg

DRUGS (7)
  1. NEORAL [Suspect]
     Indication: NEPHROTIC SYNDROME
     Dosage: 140 MG/D
     Route: 048
     Dates: end: 20070319
  2. PREDONINE [Suspect]
     Indication: NEPHROTIC SYNDROME
     Dosage: 40 MG/D
     Route: 048
  3. BREDININ [Suspect]
     Indication: NEPHROTIC SYNDROME
     Dosage: 150 MG/D
     Route: 048
  4. ACECOL [Suspect]
     Indication: NEPHROTIC SYNDROME
     Dosage: 2 MG/D
     Route: 048
     Dates: end: 20070301
  5. DIOVAN [Suspect]
     Indication: NEPHROTIC SYNDROME
     Dosage: 80 MG/D
     Route: 048
     Dates: end: 20070301
  6. LIPITOR [Concomitant]
     Dosage: 5 MG/D
     Route: 048
     Dates: end: 20070301
  7. ZYLORIC [Concomitant]
     Dosage: 100 MG/D
     Route: 048

REACTIONS (14)
  - ACUTE PRERENAL FAILURE [None]
  - ANURIA [None]
  - BLOOD CREATININE INCREASED [None]
  - BLOOD UREA INCREASED [None]
  - CEREBRAL INFARCTION [None]
  - CONVULSION [None]
  - DEHYDRATION [None]
  - HEADACHE [None]
  - INFLUENZA [None]
  - NEPHROTIC SYNDROME [None]
  - OEDEMA [None]
  - OLIGURIA [None]
  - PROTEINURIA [None]
  - SUPERIOR SAGITTAL SINUS THROMBOSIS [None]
